FAERS Safety Report 23965782 (Version 1)
Quarter: 2024Q2

REPORT INFORMATION
  Report Type: Spontaneous
  Country: FR (occurrence: FR)
  Receive Date: 20240612
  Receipt Date: 20240612
  Transmission Date: 20240716
  Serious: Yes (Death, Hospitalization, Other)
  Sender: FDA-Public Use
  Company Number: FR-ROCHE-3310637

PATIENT
  Age: 45 Year
  Sex: Male
  Weight: 51 kg

DRUGS (13)
  1. CARBOPLATIN [Suspect]
     Active Substance: CARBOPLATIN
     Indication: Non-small cell lung cancer metastatic
     Dosage: 840 MILLIGRAM, EVERY 3 WEEK (ON 07/MAR/2023, RECEIVED MOST RECENT DOSE 900 MG OF CARBOPLATIN PRIOR T
     Route: 042
     Dates: start: 20230214
  2. PEMETREXED [Suspect]
     Active Substance: PEMETREXED
     Indication: Non-small cell lung cancer metastatic
     Dosage: 850 MILLIGRAM, EVERY 3 WEEK  (ON 07/MAR/2023, RECEIVED MOST RECENT DOSE 800 MG OF PEMETREXED PRIOR T
     Route: 042
     Dates: start: 20230214
  3. TRAMADOL [Concomitant]
     Active Substance: TRAMADOL\TRAMADOL HYDROCHLORIDE
     Indication: Cancer pain
     Dosage: UNK
     Route: 065
     Dates: start: 202301
  4. FOLIC ACID [Concomitant]
     Active Substance: FOLIC ACID
     Indication: Product used for unknown indication
     Dosage: UNK
     Route: 065
     Dates: start: 20230208
  5. ZOPICLONE [Concomitant]
     Active Substance: ZOPICLONE
     Indication: Insomnia
     Dosage: UNK
     Route: 065
     Dates: start: 202301
  6. TIRAGOLUMAB [Concomitant]
     Active Substance: TIRAGOLUMAB
     Indication: Non-small cell lung cancer metastatic
     Dosage: EVERY 3 WEEK (ON 07/MAR/2023, RECEIVED MOST RECENT DOSE OF TIRAGOLUMAB PRIOR TO AE (ADVERSE EVENT) A
     Route: 065
     Dates: start: 20230214
  7. PRIMPERAN [Concomitant]
     Active Substance: METOCLOPRAMIDE HYDROCHLORIDE
     Indication: Nausea
     Dosage: UNK
     Route: 065
     Dates: start: 20230214, end: 202303
  8. PEMBROLIZUMAB [Concomitant]
     Active Substance: PEMBROLIZUMAB
     Indication: Non-small cell lung cancer metastatic
     Dosage: EVERY 3 WEEK (ON 07/MAR/2023, RECEIVED MOST RECENT DOSE OF PEMBROLIZUMAB PRIOR TO AE AND (SAE)TOTAL
     Route: 065
     Dates: start: 20230214
  9. EMEND [Concomitant]
     Active Substance: APREPITANT
     Indication: Prophylaxis of nausea and vomiting
     Dosage: UNK
     Route: 065
     Dates: start: 20230214
  10. ATEZOLIZUMAB [Concomitant]
     Active Substance: ATEZOLIZUMAB
     Indication: Non-small cell lung cancer metastatic
     Dosage: EVERY 3 WEEKS (ON 07/MAR/2023, RECEIVED MOST RECENT DOSE OF ATEZOLIZUMAB PRIOR TO AE AND (SAE)TOTAL
     Route: 065
     Dates: start: 20230214
  11. PEGFILGRASTIM [Concomitant]
     Active Substance: PEGFILGRASTIM
     Indication: Prophylaxis
     Dosage: UNK
     Route: 065
     Dates: start: 20230215
  12. Solupred [Concomitant]
     Indication: Prophylactic chemotherapy
     Dosage: 40 MILLIGRAM, ONCE A DAY
     Route: 065
     Dates: start: 20230213
  13. SODIUM BICARBONATE [Concomitant]
     Active Substance: SODIUM BICARBONATE
     Indication: Mouth ulceration
     Dosage: 1.4 PERCENT
     Dates: start: 20230315

REACTIONS (1)
  - Pneumoperitoneum [Fatal]

NARRATIVE: CASE EVENT DATE: 20230313
